FAERS Safety Report 18945310 (Version 1)
Quarter: 2021Q1

REPORT INFORMATION
  Report Type: Spontaneous
  Country: RO (occurrence: RO)
  Receive Date: 20210226
  Receipt Date: 20210226
  Transmission Date: 20210420
  Serious: Yes (Hospitalization, Other)
  Sender: FDA-Public Use
  Company Number: RO-ASTELLAS-2021US006703

PATIENT
  Age: 46 Year
  Sex: Male

DRUGS (18)
  1. TACROLIMUS. [Interacting]
     Active Substance: TACROLIMUS
     Route: 065
     Dates: start: 20200407, end: 202004
  2. CASPOFUNGIN [Concomitant]
     Active Substance: CASPOFUNGIN
     Indication: ANTIFUNGAL PROPHYLAXIS
     Route: 065
     Dates: start: 20200414, end: 202004
  3. TACROLIMUS. [Interacting]
     Active Substance: TACROLIMUS
     Dosage: 2.5 MG, ONCE DAILY (DAY 24)
     Route: 065
     Dates: start: 20200428
  4. MYCOPHENOLIC ACID. [Concomitant]
     Active Substance: MYCOPHENOLIC ACID
     Route: 065
     Dates: start: 20200407, end: 20200407
  5. LINEZOLID. [Concomitant]
     Active Substance: LINEZOLID
     Indication: ANTIBIOTIC PROPHYLAXIS
     Route: 065
     Dates: start: 20200414, end: 20200423
  6. TRIMETHOPRIM SULFAMETHOXAZOLE [Concomitant]
     Active Substance: SULFAMETHOXAZOLE\TRIMETHOPRIM
     Indication: ANTIBIOTIC PROPHYLAXIS
     Dosage: 400/80 MG, ONCE DAILY
     Route: 065
     Dates: start: 20200414, end: 20200423
  7. LOPINAVIR/RITONAVIR [Interacting]
     Active Substance: LOPINAVIR\RITONAVIR
     Indication: COVID-19
     Dosage: 400/100 MG, TWICE DAILY
     Route: 065
     Dates: start: 20200414, end: 20200423
  8. MYCOPHENOLIC ACID. [Concomitant]
     Active Substance: MYCOPHENOLIC ACID
     Indication: RENAL TRANSPLANT
     Route: 065
     Dates: start: 2017, end: 20200405
  9. PREDNISONE. [Concomitant]
     Active Substance: PREDNISONE
     Indication: RENAL TRANSPLANT
     Route: 065
     Dates: start: 2017, end: 202004
  10. METHYLPREDNISOLONE. [Concomitant]
     Active Substance: METHYLPREDNISOLONE
     Indication: RENAL TRANSPLANT
     Route: 048
     Dates: start: 202004, end: 202004
  11. TACROLIMUS. [Suspect]
     Active Substance: TACROLIMUS
     Indication: RENAL TRANSPLANT
     Route: 065
     Dates: start: 2017, end: 20200407
  12. TACROLIMUS. [Interacting]
     Active Substance: TACROLIMUS
     Dosage: 1.5 MG, ONCE DAILY (DAY 8)
     Route: 065
     Dates: start: 202004, end: 20200412
  13. MYCOPHENOLIC ACID. [Concomitant]
     Active Substance: MYCOPHENOLIC ACID
     Route: 065
     Dates: start: 20200405, end: 20200407
  14. TACROLIMUS. [Interacting]
     Active Substance: TACROLIMUS
     Dosage: 1.5 MG, ONCE DAILY (DAY 22)
     Route: 065
     Dates: start: 20200426, end: 20200427
  15. METHYLPREDNISOLONE. [Concomitant]
     Active Substance: METHYLPREDNISOLONE
     Route: 042
     Dates: start: 202004, end: 202004
  16. MEROPENEM. [Concomitant]
     Active Substance: MEROPENEM
     Indication: ANTIBIOTIC PROPHYLAXIS
     Route: 065
     Dates: start: 20200414, end: 20200423
  17. CASPOFUNGIN [Concomitant]
     Active Substance: CASPOFUNGIN
     Route: 065
     Dates: start: 202004, end: 20200426
  18. METHYLPREDNISOLONE. [Concomitant]
     Active Substance: METHYLPREDNISOLONE
     Route: 042
     Dates: start: 202004, end: 202004

REACTIONS (4)
  - Nephropathy toxic [Recovered/Resolved]
  - Drug interaction [Unknown]
  - Overdose [Unknown]
  - Acute kidney injury [Recovered/Resolved]

NARRATIVE: CASE EVENT DATE: 202004
